FAERS Safety Report 4312279-5 (Version None)
Quarter: 2004Q1

REPORT INFORMATION
  Report Type: 
  Country: None (occurrence: None)
  Receive Date: 20040303
  Receipt Date: 20040223
  Transmission Date: 20041129
  Serious: Yes (Hospitalization, Other)
  Sender: FDA-Public Use
  Company Number: 2004002731

PATIENT
  Sex: Male

DRUGS (10)
  1. DILANTIN [Suspect]
     Indication: ILL-DEFINED DISORDER
  2. NEURONTIN [Suspect]
     Indication: COMPLEX PARTIAL SEIZURES
     Dosage: 2800 MG (7 TIMES A DAY), ORAL
     Route: 048
     Dates: start: 19950101
  3. LAMOTRIGINE [Concomitant]
  4. ATORVASTATIN CALCIUM [Concomitant]
  5. BENAZEPRIL HYDROCHLORIDE (BENAZEPRIL HYDROCHLORIDE) [Concomitant]
  6. ESCITALOPRAM (ESCITALOPRAM) [Concomitant]
  7. ALL OTHER THERAPEUTIC PRODUCTS [Concomitant]
  8. CARBAMAZEPINE [Concomitant]
  9. ATENOLOL [Concomitant]
  10. WARFARIN SODIUM [Concomitant]

REACTIONS (15)
  - ABDOMINAL PAIN UPPER [None]
  - ARTHRALGIA [None]
  - ASTHENIA [None]
  - CHEST PAIN [None]
  - COMPLEX PARTIAL SEIZURES [None]
  - FALL [None]
  - LOSS OF CONSCIOUSNESS [None]
  - OVERDOSE [None]
  - PAIN [None]
  - PAIN IN EXTREMITY [None]
  - PARAESTHESIA [None]
  - SKIN DISCOLOURATION [None]
  - TREMOR [None]
  - VASCULAR OCCLUSION [None]
  - WEIGHT DECREASED [None]
